FAERS Safety Report 9145518 (Version 1)
Quarter: 2013Q1

REPORT INFORMATION
  Report Type: Spontaneous
  Country: US (occurrence: None)
  Receive Date: 20130227
  Receipt Date: 20130227
  Transmission Date: 20140127
  Serious: Yes (Hospitalization)
  Sender: FDA-Public Use
  Company Number: None

PATIENT
  Age: 61 Year
  Sex: Male
  Weight: 102.3 kg

DRUGS (3)
  1. IBUPROFEN [Suspect]
     Indication: PAIN
     Dosage: 600 MG TID PO
     Route: 048
     Dates: start: 20080801, end: 20130221
  2. IBUPROFEN [Suspect]
     Indication: INFLAMMATION
     Dosage: 600 MG TID PO
     Route: 048
     Dates: start: 20080801, end: 20130221
  3. ASPIRIN [Suspect]
     Indication: PAIN
     Dosage: 325 MG BID PO
     Route: 048

REACTIONS (2)
  - Duodenal ulcer [None]
  - Gastric haemorrhage [None]
